FAERS Safety Report 8801711 (Version 2)
Quarter: 2015Q3

REPORT INFORMATION
  Report Type: Report from Study
  Country: US (occurrence: US)
  Receive Date: 20120921
  Receipt Date: 20150729
  Transmission Date: 20151125
  Serious: Yes (Death)
  Sender: FDA-Public Use
  Company Number: US-ROCHE-1124745

PATIENT
  Sex: Female

DRUGS (8)
  1. ZOFRAN [Concomitant]
     Active Substance: ONDANSETRON HYDROCHLORIDE
     Route: 048
  2. DECADRON [Concomitant]
     Active Substance: DEXAMETHASONE
     Route: 065
  3. OXALIPLATIN. [Concomitant]
     Active Substance: OXALIPLATIN
  4. 5 FLUORO URACIL [Concomitant]
     Active Substance: FLUOROURACIL
     Route: 065
  5. CISPLATIN. [Concomitant]
     Active Substance: CISPLATIN
     Route: 065
  6. AVASTIN [Suspect]
     Active Substance: BEVACIZUMAB
     Indication: GASTRIC CANCER
     Route: 042
     Dates: start: 20050816
  7. EPIRUBICIN [Concomitant]
     Active Substance: EPIRUBICIN
     Route: 042
  8. LEUCOVORIN. [Concomitant]
     Active Substance: LEUCOVORIN

REACTIONS (2)
  - Death [Fatal]
  - Off label use [Unknown]
